FAERS Safety Report 25742944 (Version 2)
Quarter: 2025Q3

REPORT INFORMATION
  Report Type: Report from Study
  Country: CA (occurrence: CA)
  Receive Date: 20250830
  Receipt Date: 20250913
  Transmission Date: 20251021
  Serious: Yes (Other)
  Sender: CELLTRION
  Company Number: CA-CELLTRION INC.-2025CA030508

PATIENT

DRUGS (7)
  1. ADALIMUMAB-AATY [Suspect]
     Active Substance: ADALIMUMAB-AATY
     Indication: Uveitis
     Dosage: 40 MG EVERY 14 DAYS (MAINTENANCE)
     Route: 058
     Dates: start: 20240428, end: 2025
  2. ADALIMUMAB-AATY [Suspect]
     Active Substance: ADALIMUMAB-AATY
  3. FLUCONAZOLE [Concomitant]
     Active Substance: FLUCONAZOLE
     Dosage: 15 MG, EVERY WEEKS FOR 6 MONTHS
     Route: 048
  4. CLONAZEPAM [Concomitant]
     Active Substance: CLONAZEPAM
  5. CITALOPRAM [Concomitant]
     Active Substance: CITALOPRAM
  6. RESTORIL [Concomitant]
     Active Substance: TEMAZEPAM
  7. LISDEXAMFETAMINE [Concomitant]
     Active Substance: LISDEXAMFETAMINE

REACTIONS (1)
  - Lymphoma [Unknown]
